FAERS Safety Report 8319664-5 (Version None)
Quarter: 2012Q2

REPORT INFORMATION
  Report Type: 
  Country: None (occurrence: None)
  Receive Date: 20120427
  Receipt Date: 20120424
  Transmission Date: 20120825
  Serious: Yes (Life-Threatening)
  Sender: FDA-Public Use
  Company Number: DE-B.I. PHARMACEUTICALS,INC./RIDGEFIELD-2012-DE-00959DE

PATIENT
  Sex: Male
  Weight: 110 kg

DRUGS (12)
  1. HYDROCHLOROTHIAZIDE [Concomitant]
     Dosage: 25 MG
     Route: 048
  2. REPAGLINIDE [Concomitant]
     Dosage: 2 MG
     Route: 048
  3. METFORMIN HCL [Concomitant]
     Dosage: 1560 MG
     Route: 048
  4. ASPIRIN [Suspect]
     Dosage: 100 MG
     Route: 048
     Dates: end: 20120315
  5. INSULIN GLULISIN [Concomitant]
     Dosage: AS REQUIRED
     Route: 058
  6. BISOPROLOL FUMARATE [Concomitant]
     Dosage: 5 MG
     Route: 048
  7. RAMIPRIL [Concomitant]
     Dosage: 15 MG
     Route: 048
  8. SITAGLIPTIN [Concomitant]
     Dosage: 100 MG
     Route: 048
  9. AMIODARONE HCL [Concomitant]
     Dosage: 200 MG
     Route: 048
  10. INSULIN GLARGIN [Concomitant]
     Dosage: AS REQUIRED
     Route: 058
  11. PRADAXA [Suspect]
     Indication: ATRIAL FIBRILLATION
     Dosage: 220 MG
     Route: 048
     Dates: start: 20111001, end: 20120315
  12. SIMVASTATIN [Concomitant]
     Dosage: 20 MG
     Route: 048

REACTIONS (3)
  - CEREBRAL HAEMORRHAGE [None]
  - BRAIN MIDLINE SHIFT [None]
  - BLOOD PRESSURE ABNORMAL [None]
